FAERS Safety Report 7919530-0 (Version None)
Quarter: 2011Q4

REPORT INFORMATION
  Report Type: 
  Country: None (occurrence: None)
  Receive Date: 20111116
  Receipt Date: 20111116
  Transmission Date: 20120403
  Serious: No
  Sender: FDA-Public Use
  Company Number: None

PATIENT
  Sex: Male
  Weight: 84 kg

DRUGS (1)
  1. KRYSTEXXA [Suspect]
     Indication: GOUT
     Dosage: 8MG ONCE IV
     Route: 042
     Dates: start: 20110316, end: 20110831

REACTIONS (1)
  - DIZZINESS [None]
